FAERS Safety Report 6344350-0 (Version None)
Quarter: 2009Q3

REPORT INFORMATION
  Report Type: 
  Country: None (occurrence: None)
  Receive Date: 20090821
  Receipt Date: 20090501
  Transmission Date: 20100115
  Serious: No
  Sender: FDA-Public Use
  Company Number: 8045613

PATIENT
  Age: 50 Year
  Sex: Male
  Weight: 90.9 kg

DRUGS (1)
  1. CIMZIA [Suspect]
     Indication: CROHN'S DISEASE
     Dosage: 400 MG SC
     Route: 058
     Dates: start: 20081101

REACTIONS (6)
  - ABDOMINAL DISTENSION [None]
  - ASTHENIA [None]
  - BODY TEMPERATURE INCREASED [None]
  - CONFUSIONAL STATE [None]
  - INFLUENZA LIKE ILLNESS [None]
  - PROPHYLAXIS OF NAUSEA AND VOMITING [None]
